FAERS Safety Report 25454169 (Version 5)
Quarter: 2025Q3

REPORT INFORMATION
  Report Type: Spontaneous
  Country: UY (occurrence: UY)
  Receive Date: 20250619
  Receipt Date: 20250724
  Transmission Date: 20251021
  Serious: Yes (Hospitalization, Other)
  Sender: ROCHE
  Company Number: UY-ROCHE-10000311939

PATIENT
  Age: 62 Year
  Sex: Female

DRUGS (8)
  1. OCREVUS [Suspect]
     Active Substance: OCRELIZUMAB
     Indication: Relapsing-remitting multiple sclerosis
     Route: 042
     Dates: start: 20250528, end: 20250528
  2. convertal D [Concomitant]
     Indication: Hypertension
     Dosage: DOSE WAS NOT REPORTED, ONE UNIT PER DAY
  3. LOSARTAN [Concomitant]
     Active Substance: LOSARTAN
     Indication: Hypertension
  4. HYDROCHLOROTHIAZIDE [Concomitant]
     Active Substance: HYDROCHLOROTHIAZIDE
     Indication: Hypertension
  5. VENLAFAXINE [Concomitant]
     Active Substance: VENLAFAXINE HYDROCHLORIDE
     Indication: Anxiety
  6. LACTULOSE [Concomitant]
     Active Substance: LACTULOSE
  7. AMLODIPINE [Concomitant]
     Active Substance: AMLODIPINE BESYLATE
     Indication: Hypertension
  8. LEVOTHYROXINE SODIUM [Concomitant]
     Active Substance: LEVOTHYROXINE SODIUM

REACTIONS (8)
  - Haemorrhage [Recovered/Resolved]
  - Abdominal pain upper [Unknown]
  - Colitis [Recovering/Resolving]
  - Hypokalaemia [Recovered/Resolved]
  - Pain [Unknown]
  - White blood cells stool positive [Unknown]
  - Multiple sclerosis [Unknown]
  - General physical health deterioration [Unknown]

NARRATIVE: CASE EVENT DATE: 20250606
